FAERS Safety Report 13481524 (Version 2)
Quarter: 2017Q3

REPORT INFORMATION
  Report Type: Report from Study
  Country: US (occurrence: US)
  Receive Date: 20170424
  Receipt Date: 20170728
  Transmission Date: 20171127
  Serious: No
  Sender: FDA-Public Use
  Company Number: US-AMGEN-USASL2017036321

PATIENT
  Age: 59 Year
  Sex: Male
  Weight: 69.39 kg

DRUGS (2)
  1. REPATHA [Suspect]
     Active Substance: EVOLOCUMAB
     Indication: CORONARY ARTERY DISEASE
  2. REPATHA [Suspect]
     Active Substance: EVOLOCUMAB
     Indication: HYPERLIPIDAEMIA
     Dosage: 140 MG/ML, Q2WK
     Route: 058
     Dates: start: 20161128

REACTIONS (4)
  - Wrong technique in product usage process [Unknown]
  - Nausea [Recovered/Resolved]
  - Injury associated with device [Unknown]
  - Abdominal pain [Recovered/Resolved]

NARRATIVE: CASE EVENT DATE: 20161226
